FAERS Safety Report 7109123-X (Version None)
Quarter: 2010Q4

REPORT INFORMATION
  Report Type: 
  Country: None (occurrence: None)
  Receive Date: 20101117
  Receipt Date: 20101112
  Transmission Date: 20110411
  Serious: Yes (Other)
  Sender: FDA-Public Use
  Company Number: IT-PFIZER INC-2010148049

PATIENT
  Age: 51 Year
  Sex: Female

DRUGS (7)
  1. TORVAST [Suspect]
     Indication: DYSLIPIDAEMIA
     Dosage: 80 MG, 1X/DAY
     Route: 048
     Dates: start: 20101030, end: 20101102
  2. TORVAST [Suspect]
     Dosage: 40 MG, 1X/DAY
     Route: 048
     Dates: start: 20101103, end: 20101105
  3. BISOPROLOL [Concomitant]
     Dosage: 3.75 MG, 1X/DAY
  4. OMEGA 9 TRIGLYCERIDES [Concomitant]
     Dosage: 1000 MG, UNK
  5. PANTOPRAZOLE SODIUM [Concomitant]
     Dosage: 40 MG, UNK
  6. ACETYLSALICYLIC ACID [Concomitant]
     Dosage: 100 MG, UNK
  7. LEVOTHYROXINE [Concomitant]
     Dosage: 100 MG, 1X/DAY

REACTIONS (1)
  - LIVER DISORDER [None]
